FAERS Safety Report 5722563-6 (Version None)
Quarter: 2008Q2

REPORT INFORMATION
  Report Type: 
  Country: None (occurrence: None)
  Receive Date: 20080429
  Receipt Date: 20071026
  Transmission Date: 20081010
  Serious: No
  Sender: FDA-Public Use
  Company Number: US-ASTRAZENECA-2007UW24950

PATIENT
  Age: 86 Year
  Sex: Female
  Weight: 54.9 kg

DRUGS (5)
  1. NEXIUM [Suspect]
     Indication: GASTROOESOPHAGEAL REFLUX DISEASE
     Route: 048
  2. NEXIUM [Suspect]
     Route: 048
  3. TAGAMET [Concomitant]
  4. LOPRESSOR [Concomitant]
  5. MONOPRIL [Concomitant]

REACTIONS (4)
  - ABDOMINAL PAIN [None]
  - ABNORMAL FAECES [None]
  - CHEST PAIN [None]
  - DIARRHOEA [None]
